FAERS Safety Report 12779457 (Version 1)
Quarter: 2016Q3

REPORT INFORMATION
  Report Type: Spontaneous
  Country: AR (occurrence: AR)
  Receive Date: 20160926
  Receipt Date: 20160926
  Transmission Date: 20161109
  Serious: Yes (Other)
  Sender: FDA-Public Use
  Company Number: PHHY2016AR131305

PATIENT
  Age: 64 Year
  Sex: Female

DRUGS (2)
  1. LETROZOLE. [Suspect]
     Active Substance: LETROZOLE
     Indication: PRODUCT USED FOR UNKNOWN INDICATION
     Route: 065
  2. PALBOCICLIB [Suspect]
     Active Substance: PALBOCICLIB
     Indication: BREAST CANCER METASTATIC
     Dosage: UNK
     Route: 065
     Dates: start: 20160819

REACTIONS (3)
  - Diarrhoea [Recovering/Resolving]
  - Full blood count decreased [Recovering/Resolving]
  - Haemorrhage [Recovering/Resolving]

NARRATIVE: CASE EVENT DATE: 20160912
